FAERS Safety Report 9631470 (Version 2)
Quarter: 2013Q4

REPORT INFORMATION
  Report Type: Report from Study
  Country: US (occurrence: US)
  Receive Date: 20131018
  Receipt Date: 20131110
  Transmission Date: 20140711
  Serious: Yes (Other)
  Sender: FDA-Public Use
  Company Number: PHEH2013US021559

PATIENT
  Age: 40 Year
  Sex: Female

DRUGS (3)
  1. GILENYA [Suspect]
     Indication: MULTIPLE SCLEROSIS
     Dosage: 0.5 MG, QD
     Route: 048
     Dates: start: 201101
  2. ZYPREXA [Concomitant]
  3. CELEXA [Concomitant]

REACTIONS (3)
  - Loss of consciousness [Recovered/Resolved]
  - Dyspnoea [Unknown]
  - Paraesthesia [Unknown]
